FAERS Safety Report 7112184-5 (Version None)
Quarter: 2010Q4

REPORT INFORMATION
  Report Type: 
  Country: None (occurrence: None)
  Receive Date: 20101119
  Receipt Date: 20100211
  Transmission Date: 20110411
  Serious: No
  Sender: FDA-Public Use
  Company Number: A0844026A

PATIENT
  Sex: Male

DRUGS (1)
  1. AVODART [Suspect]

REACTIONS (3)
  - LIGAMENT PAIN [None]
  - MUSCULOSKELETAL STIFFNESS [None]
  - TENDON PAIN [None]
